FAERS Safety Report 17372454 (Version 1)
Quarter: 2020Q1

REPORT INFORMATION
  Report Type: Spontaneous
  Country: SE (occurrence: SE)
  Receive Date: 20200205
  Receipt Date: 20200205
  Transmission Date: 20200409
  Serious: Yes (Hospitalization)
  Sender: FDA-Public Use
  Company Number: SE-MYLANLABS-2020M1012946

PATIENT
  Age: 23 Year
  Sex: Female

DRUGS (3)
  1. LERGIGAN (PROMETHAZINE HYDROCHLORIDE) [Suspect]
     Active Substance: PROMETHAZINE HYDROCHLORIDE
     Indication: PRODUCT USED FOR UNKNOWN INDICATION
     Dosage: 5 ST ? 25 MG
     Dates: start: 20180423, end: 20180423
  2. VENLAFAXINE [Suspect]
     Active Substance: VENLAFAXINE HYDROCHLORIDE
     Indication: PRODUCT USED FOR UNKNOWN INDICATION
     Dosage: 150 MILLIGRAM
     Dates: start: 20180423, end: 20180423
  3. IMOVANE [Suspect]
     Active Substance: ZOPICLONE
     Indication: PRODUCT USED FOR UNKNOWN INDICATION
     Dosage: 8 ST ? 5 MG
     Dates: start: 20180423, end: 20180423

REACTIONS (5)
  - Akathisia [Unknown]
  - Tachycardia [Unknown]
  - Intentional self-injury [Unknown]
  - Intentional overdose [Unknown]
  - Fatigue [Unknown]

NARRATIVE: CASE EVENT DATE: 20180423
